FAERS Safety Report 4793482-7 (Version None)
Quarter: 2005Q4

REPORT INFORMATION
  Report Type: 
  Country: None (occurrence: None)
  Receive Date: 20051011
  Receipt Date: 20050728
  Transmission Date: 20060501
  Serious: No
  Sender: FDA-Public Use
  Company Number: US-BRISTOL-MYERS SQUIBB COMPANY-13054473

PATIENT
  Age: 66 Year
  Sex: Female
  Weight: 68 kg

DRUGS (4)
  1. GLUCOPHAGE XR [Suspect]
     Indication: DIABETES MELLITUS
  2. METFORMIN HCL [Suspect]
  3. HYDROCHLOROTHIAZIDE [Concomitant]
  4. LIPITOR [Concomitant]

REACTIONS (2)
  - BLOOD GLUCOSE FLUCTUATION [None]
  - MUSCLE SPASMS [None]
